FAERS Safety Report 15387492 (Version 4)
Quarter: 2020Q3

REPORT INFORMATION
  Report Type: Report from Study
  Country: JP (occurrence: JP)
  Receive Date: 20180914
  Receipt Date: 20200909
  Transmission Date: 20201102
  Serious: Yes (Hospitalization, Other)
  Sender: FDA-Public Use
  Company Number: JP-SA-2018SA250566

PATIENT

DRUGS (38)
  1. DEXCHLORPHENIRAMINE MALEATE. [Suspect]
     Active Substance: DEXCHLORPHENIRAMINE MALEATE
     Indication: ACNE
     Dosage: PRN: 2 MG (PATIENT?CONTROLLED)
     Route: 048
     Dates: start: 20161029
  2. THYRADIN [Concomitant]
     Active Substance: LEVOTHYROXINE
     Indication: HYPOTHYROIDISM
     Dosage: DAILY DOSE: 75 UG DAILY
     Route: 048
  3. VANDETANIB. [Suspect]
     Active Substance: VANDETANIB
     Dosage: 100 MG, QD
     Route: 048
     Dates: start: 20170622, end: 20170707
  4. VIBRAMYCIN AKNE [Suspect]
     Active Substance: DOXYCYCLINE
     Indication: ACNE
     Dosage: DAILY DOSE: 100 MG, DAILY
     Route: 048
     Dates: start: 20180804
  5. VALSARTAN. [Concomitant]
     Active Substance: VALSARTAN
     Indication: HYPERTENSION
     Dosage: DAILY DOSE: FROM 40 MG TO 80 MG AND THEN TO 40 MG
     Route: 048
     Dates: start: 20160915
  6. AMLODIPINE BESILATE [Concomitant]
     Active Substance: AMLODIPINE BESYLATE
     Indication: PROPHYLAXIS
  7. DEXCHLORPHENIRAMINE MALEATE. [Concomitant]
     Active Substance: DEXCHLORPHENIRAMINE MALEATE
     Indication: ACNE
     Dosage: DAILY DOSE: 2 MG, AS NEEDED
     Route: 048
     Dates: start: 20161029
  8. DEXCHLORPHENIRAMINE MALEATE. [Concomitant]
     Active Substance: DEXCHLORPHENIRAMINE MALEATE
     Indication: PROPHYLAXIS
  9. VANDETANIB. [Suspect]
     Active Substance: VANDETANIB
     Dosage: 100 MG, QD
     Route: 048
     Dates: start: 20170722, end: 20180803
  10. DOMPERIDONE [Suspect]
     Active Substance: DOMPERIDONE
     Indication: NAUSEA
     Dosage: 10 MG DAILY
     Route: 048
     Dates: start: 20161229
  11. CLARITHROMYCIN. [Suspect]
     Active Substance: CLARITHROMYCIN
     Indication: ACNE
     Dosage: 400 MG DAILY
     Route: 048
     Dates: start: 20180609, end: 20180721
  12. AMLODIPINE BESILATE [Concomitant]
     Active Substance: AMLODIPINE BESYLATE
     Indication: HYPERTENSION
     Dosage: DAILY DOSE: 5 MG
     Route: 048
     Dates: start: 20160924
  13. ALFACALCIDOL [Concomitant]
     Active Substance: ALFACALCIDOL
     Indication: HYPOPARATHYROIDISM
     Dosage: DAILY DOSE: 0.5 UG DAILY
     Route: 048
  14. DUAC [Concomitant]
     Active Substance: BENZOYL PEROXIDE\CLINDAMYCIN PHOSPHATE
     Indication: PROPHYLAXIS
  15. VANDETANIB. [Suspect]
     Active Substance: VANDETANIB
     Dosage: 200 MG, QD
     Route: 048
     Dates: start: 20170415, end: 20170524
  16. VANDETANIB. [Suspect]
     Active Substance: VANDETANIB
     Dosage: 100 MG, QD
     Route: 048
     Dates: start: 20170617, end: 20170620
  17. VALSARTAN. [Suspect]
     Active Substance: VALSARTAN
     Dosage: DAILY DOSE: 40 MG
     Route: 048
  18. MINOCYCLINE HYDROCHLORIDE. [Suspect]
     Active Substance: MINOCYCLINE HYDROCHLORIDE
     Indication: ACNE
     Dosage: 100 MG DAILY
     Route: 048
     Dates: start: 20161029
  19. XYZAL [Suspect]
     Active Substance: LEVOCETIRIZINE DIHYDROCHLORIDE
     Indication: PROPHYLAXIS
     Dosage: DAILY DOSE:5 UG
     Route: 065
     Dates: start: 20161022
  20. UREA. [Concomitant]
     Active Substance: UREA
     Indication: PROPHYLAXIS
     Dosage: APPROPRIATE DOSE, AS NEEDED
     Route: 061
  21. LOPERAMIDE HYDROCHLORIDE. [Concomitant]
     Active Substance: LOPERAMIDE HYDROCHLORIDE
     Indication: DIARRHOEA
     Dosage: DAILY OR AS?NEEDED USE: 3 MG
     Route: 048
     Dates: start: 20160901, end: 20170401
  22. VALSARTAN. [Concomitant]
     Active Substance: VALSARTAN
     Indication: PROPHYLAXIS
  23. MINOCYCLINE HYDROCHLORIDE. [Concomitant]
     Active Substance: MINOCYCLINE HYDROCHLORIDE
     Indication: PROPHYLAXIS
  24. DEXCHLORPHENIRAMINE MALEATE. [Concomitant]
     Active Substance: DEXCHLORPHENIRAMINE MALEATE
     Indication: ACNE
     Dosage: DAILY DOSE: 12 MG
     Route: 048
     Dates: start: 20170624
  25. VANDETANIB. [Suspect]
     Active Substance: VANDETANIB
     Dosage: 200 MG, QD
     Route: 048
     Dates: start: 20170105, end: 20170331
  26. AMLODIPINE BESILATE [Suspect]
     Active Substance: AMLODIPINE BESYLATE
     Indication: HYPERTENSION
     Dosage: 5 MG DAILY
     Route: 048
     Dates: start: 20160924
  27. DEXCHLORPHENIRAMINE MALEATE. [Suspect]
     Active Substance: DEXCHLORPHENIRAMINE MALEATE
     Indication: ACNE
     Dosage: 12 MG DAILY
     Route: 048
     Dates: start: 20170624
  28. VIBRAMYCIN AKNE [Suspect]
     Active Substance: DOXYCYCLINE
     Dosage: DAILY DOSE: 100 MG
     Route: 065
     Dates: start: 20180804
  29. MINOCYCLINE HYDROCHLORIDE. [Concomitant]
     Active Substance: MINOCYCLINE HYDROCHLORIDE
     Indication: ACNE
     Dosage: DAILY DOSE: 100 MG
     Route: 048
     Dates: start: 20161029
  30. DEXCHLORPHENIRAMINE MALEATE. [Concomitant]
     Active Substance: DEXCHLORPHENIRAMINE MALEATE
     Indication: PROPHYLAXIS
  31. VANDETANIB. [Suspect]
     Active Substance: VANDETANIB
     Indication: MEDULLARY THYROID CANCER
     Dosage: 300 MG, QD
     Route: 048
     Dates: start: 20160831, end: 20161111
  32. VANDETANIB. [Suspect]
     Active Substance: VANDETANIB
     Dosage: 300 MG, QD
     Route: 048
     Dates: start: 20161119, end: 20161223
  33. XYZAL [Suspect]
     Active Substance: LEVOCETIRIZINE DIHYDROCHLORIDE
     Indication: RASH
     Dosage: AS?NEEDED USE: 5 MG  (PATIENT?CONTROLLED)
     Route: 048
     Dates: start: 20161022
  34. HIRUDOID [Concomitant]
     Active Substance: GLYCOSAMINOGLYCANS
     Indication: PROPHYLAXIS
     Dosage: APPROPRIATE DOSE, PRN
     Route: 061
  35. BIOFERMIN R [Concomitant]
     Active Substance: DIETARY SUPPLEMENT\PROBIOTICS
     Indication: DIARRHOEA
     Dosage: DAILY DOSE: 18 MG DAILY
     Route: 048
     Dates: start: 20160924
  36. VALSARTAN. [Suspect]
     Active Substance: VALSARTAN
     Indication: HYPERTENSION
     Dosage: DAILY DOSE: 40 MG DAILY
     Route: 048
     Dates: start: 20160915
  37. VALSARTAN. [Suspect]
     Active Substance: VALSARTAN
     Dosage: DAILY DOSE: 80 MG
     Route: 048
  38. DUAC [Concomitant]
     Active Substance: BENZOYL PEROXIDE\CLINDAMYCIN PHOSPHATE
     Indication: ACNE
     Dosage: USE AS NEEDED, PRN
     Route: 061
     Dates: start: 20160915

REACTIONS (14)
  - Dehydration [Recovered/Resolved]
  - Renal impairment [Recovered/Resolved]
  - Nausea [Recovered/Resolved]
  - Blood creatinine increased [Recovered/Resolved]
  - Diarrhoea [Recovered/Resolved]
  - Hypertension [Recovering/Resolving]
  - Acne [Recovering/Resolving]
  - Rash [Recovered/Resolved]
  - Renal impairment [Recovered/Resolved]
  - Urinary occult blood positive [Recovering/Resolving]
  - Nausea [Recovered/Resolved]
  - Decreased appetite [Recovered/Resolved]
  - Proteinuria [Recovering/Resolving]
  - Pruritus [Recovering/Resolving]

NARRATIVE: CASE EVENT DATE: 20160906
